FAERS Safety Report 24718002 (Version 1)
Quarter: 2024Q4

REPORT INFORMATION
  Report Type: Spontaneous
  Country: US (occurrence: None)
  Receive Date: 20241210
  Receipt Date: 20241210
  Transmission Date: 20250115
  Serious: No
  Sender: Public
  Company Number: None

PATIENT
  Sex: Male

DRUGS (2)
  1. LENALIDOMIDE [Suspect]
     Active Substance: LENALIDOMIDE
     Indication: Plasma cell myeloma
     Dosage: 1 CAPSULE BY MOUTH 1 TIME A DAY FOR 21 DAYS ON THEN 7 DAYS OFF?.?
     Route: 048
     Dates: start: 202103
  2. ASPIRIN [Suspect]
     Active Substance: ASPIRIN

REACTIONS (2)
  - Pulmonary embolism [None]
  - Near death experience [None]
